FAERS Safety Report 6285183-3 (Version None)
Quarter: 2009Q3

REPORT INFORMATION
  Report Type: 
  Country: None (occurrence: None)
  Receive Date: 20090727
  Receipt Date: 20090715
  Transmission Date: 20100115
  Serious: Yes (Other)
  Sender: FDA-Public Use
  Company Number: PHEH2008US00460

PATIENT
  Sex: Male

DRUGS (7)
  1. ZOMETA [Suspect]
     Dosage: 4MG MONTHLY
     Dates: start: 20060214
  2. AVASTIN [Concomitant]
  3. CHEMOTHERAPEUTICS NOS [Concomitant]
  4. PRILOSEC [Concomitant]
  5. HYDROCHLOROTHIAZIDE [Concomitant]
  6. LISINOPRIL [Concomitant]
  7. LEXAPRO [Concomitant]

REACTIONS (22)
  - ANXIETY [None]
  - BACK PAIN [None]
  - BONE DISORDER [None]
  - BONE PAIN [None]
  - CEREBRAL ATROPHY [None]
  - CEREBROVASCULAR ACCIDENT [None]
  - CONFUSIONAL STATE [None]
  - DEBRIDEMENT [None]
  - DECREASED APPETITE [None]
  - DYSPNOEA [None]
  - INJURY [None]
  - ORAL PAIN [None]
  - OSTEONECROSIS [None]
  - PAIN [None]
  - PAIN IN JAW [None]
  - PERICARDIAL DISEASE [None]
  - PERIODONTAL DISEASE [None]
  - PLEURAL EFFUSION [None]
  - RESORPTION BONE INCREASED [None]
  - SPINAL OSTEOARTHRITIS [None]
  - TOOTH EXTRACTION [None]
  - TOOTH INFECTION [None]
